FAERS Safety Report 18497985 (Version 2)
Quarter: 2021Q1

REPORT INFORMATION
  Report Type: Spontaneous
  Country: US (occurrence: US)
  Receive Date: 20201112
  Receipt Date: 20210106
  Transmission Date: 20210419
  Serious: Yes (Death, Hospitalization)
  Sender: FDA-Public Use
  Company Number: US-TEVA-2020-US-1846428

PATIENT
  Age: 76 Year
  Sex: Female

DRUGS (1)
  1. ENOXAPARIN [Suspect]
     Active Substance: ENOXAPARIN
     Indication: PROPHYLAXIS
     Route: 065

REACTIONS (12)
  - Multiple organ dysfunction syndrome [Fatal]
  - Shock haemorrhagic [Fatal]
  - Haemoperitoneum [Unknown]
  - Abdominal compartment syndrome [Unknown]
  - Abdominal wall haematoma [Fatal]
  - Gallbladder necrosis [Unknown]
  - Loss of consciousness [Recovered/Resolved]
  - Hypotension [Unknown]
  - Large intestinal haemorrhage [Unknown]
  - Haemobilia [Unknown]
  - Cardiac arrest [Fatal]
  - Gastrointestinal necrosis [Unknown]
